FAERS Safety Report 23486388 (Version 1)
Quarter: 2024Q1

REPORT INFORMATION
  Report Type: Spontaneous
  Country: NL (occurrence: NL)
  Receive Date: 20240206
  Receipt Date: 20240206
  Transmission Date: 20240410
  Serious: Yes (Life-Threatening)
  Sender: FDA-Public Use
  Company Number: None

PATIENT
  Age: 52 Year
  Sex: Female
  Weight: 65 kg

DRUGS (1)
  1. MORPHINE [Suspect]
     Active Substance: MORPHINE
     Indication: Analgesic therapy
     Dosage: 1 X 5 MG INJECTION LIQUID ONCE INJVLST 10MG/ML / BRAND NAME NOT SPECIFIED
     Route: 042
     Dates: start: 20231020

REACTIONS (1)
  - Anaphylactic shock [Recovered/Resolved]
